FAERS Safety Report 6898632-4 (Version None)
Quarter: 2010Q3

REPORT INFORMATION
  Report Type: 
  Country: None (occurrence: None)
  Receive Date: 20100729
  Receipt Date: 20100722
  Transmission Date: 20110219
  Serious: Yes (Other)
  Sender: FDA-Public Use
  Company Number: RB-12312-2010

PATIENT
  Sex: Male

DRUGS (4)
  1. SUBOXONE [Suspect]
     Indication: DRUG DEPENDENCE
     Dosage: (4 MG TID SUBLINGUAL)
     Route: 060
     Dates: start: 20100601
  2. ZANAFLEX [Suspect]
     Indication: MUSCLE SPASMS
     Dosage: (DOSING DETAILS ORAL)
     Route: 048
     Dates: start: 20100701, end: 20100701
  3. VALIUM [Suspect]
     Indication: ANXIETY DISORDER
     Dosage: (1 MG ORAL)
     Route: 048
     Dates: end: 20100701
  4. ROBAXIN [Suspect]
     Indication: MUSCLE SPASMS
     Dosage: (750 MG TID ORAL)
     Route: 048
     Dates: start: 20100721

REACTIONS (7)
  - ABNORMAL DREAMS [None]
  - ANXIETY DISORDER [None]
  - DIZZINESS [None]
  - FEELING HOT [None]
  - HALLUCINATION [None]
  - HYPERHIDROSIS [None]
  - MUSCLE SPASMS [None]
